FAERS Safety Report 7094615-2 (Version None)
Quarter: 2010Q4

REPORT INFORMATION
  Report Type: 
  Country: None (occurrence: None)
  Receive Date: 20101110
  Receipt Date: 20101105
  Transmission Date: 20110411
  Serious: Yes (Other)
  Sender: FDA-Public Use
  Company Number: BR-PFIZER INC-2010141334

PATIENT
  Age: 72 Year
  Sex: Female
  Weight: 65 kg

DRUGS (4)
  1. DIABINESE [Suspect]
     Indication: DIABETES MELLITUS
     Dosage: 500 MG, 1X/DAY
     Route: 048
     Dates: start: 19930101
  2. GLUCOFORMIN [Concomitant]
     Indication: DIABETES MELLITUS
     Dosage: 850 MG, UNK
  3. PURAN T4 [Concomitant]
     Indication: THYROID DISORDER
     Dosage: UNK
  4. ENALAPRIL MALEATE [Concomitant]
     Indication: HYPERTENSION
     Dosage: UNK

REACTIONS (7)
  - BLINDNESS [None]
  - CORNEAL OPERATION [None]
  - DECREASED APPETITE [None]
  - MALAISE [None]
  - MEDICATION ERROR [None]
  - PRODUCT SUBSTITUTION ISSUE [None]
  - WEIGHT DECREASED [None]
